FAERS Safety Report 7291381-2 (Version None)
Quarter: 2011Q1

REPORT INFORMATION
  Report Type: 
  Country: None (occurrence: None)
  Receive Date: 20110214
  Receipt Date: 20110202
  Transmission Date: 20110831
  Serious: Yes (Other)
  Sender: FDA-Public Use
  Company Number: B0697992A

PATIENT
  Sex: Female

DRUGS (6)
  1. GLYBURIDE [Concomitant]
  2. ZOPICLONE [Concomitant]
  3. AVANDAMET [Suspect]
     Route: 048
     Dates: start: 20071201, end: 20101001
  4. KARDEGIC [Concomitant]
  5. RISPERDAL [Concomitant]
     Dates: start: 20081101
  6. SULPIRIDE [Concomitant]
     Dates: start: 20090201, end: 20090301

REACTIONS (1)
  - WEIGHT DECREASED [None]
